FAERS Safety Report 25607786 (Version 1)
Quarter: 2025Q3

REPORT INFORMATION
  Report Type: Spontaneous
  Country: GB (occurrence: GB)
  Receive Date: 20250725
  Receipt Date: 20250725
  Transmission Date: 20251021
  Serious: Yes (Other)
  Sender: DAIICHI
  Company Number: GB-DSJP-DSE-2024-135586

PATIENT
  Sex: Female

DRUGS (5)
  1. ENHERTU [Suspect]
     Active Substance: FAM-TRASTUZUMAB DERUXTECAN-NXKI
     Indication: Breast cancer metastatic
     Route: 065
     Dates: start: 20240628, end: 20240628
  2. ENHERTU [Suspect]
     Active Substance: FAM-TRASTUZUMAB DERUXTECAN-NXKI
     Route: 065
  3. ENHERTU [Suspect]
     Active Substance: FAM-TRASTUZUMAB DERUXTECAN-NXKI
     Route: 065
  4. ENHERTU [Suspect]
     Active Substance: FAM-TRASTUZUMAB DERUXTECAN-NXKI
     Route: 065
  5. ZOMETA [Concomitant]
     Active Substance: ZOLEDRONIC ACID
     Indication: Product used for unknown indication
     Route: 065

REACTIONS (15)
  - Recurrent cancer [Unknown]
  - Balance disorder [Not Recovered/Not Resolved]
  - Pain [Unknown]
  - Bedridden [Recovering/Resolving]
  - Gastrointestinal disorder [Unknown]
  - Weight decreased [Unknown]
  - Alopecia [Unknown]
  - Abdominal pain upper [Unknown]
  - Diarrhoea [Unknown]
  - Vomiting [Recovered/Resolved]
  - Fatigue [Unknown]
  - Nausea [Unknown]
  - Decreased appetite [Unknown]
  - Rash pruritic [Unknown]
  - Vomiting [Unknown]

NARRATIVE: CASE EVENT DATE: 20240630
